FAERS Safety Report 6207818-3 (Version None)
Quarter: 2009Q2

REPORT INFORMATION
  Report Type: 
  Country: None (occurrence: None)
  Receive Date: 20090528
  Receipt Date: 20090521
  Transmission Date: 20091009
  Serious: Yes (Life-Threatening, Other)
  Sender: FDA-Public Use
  Company Number: JP-ELI_LILLY_AND_COMPANY-JP200904007016

PATIENT
  Age: 79 Year
  Sex: Female

DRUGS (3)
  1. EVISTA [Suspect]
     Indication: OSTEOPOROSIS
     Dosage: 60 MG, DAILY (1/D)
     Route: 048
     Dates: start: 20070730, end: 20090216
  2. LANSOPRAZOLE [Interacting]
     Indication: REFLUX OESOPHAGITIS
     Dosage: 1 D/F, DAILY (1/D)
     Route: 048
  3. MAGNESIUM OXIDE [Concomitant]
     Route: 048

REACTIONS (2)
  - DRUG INTERACTION [None]
  - PLATELET COUNT DECREASED [None]
